FAERS Safety Report 7797639-2 (Version None)
Quarter: 2011Q4

REPORT INFORMATION
  Report Type: 
  Country: None (occurrence: None)
  Receive Date: 20111005
  Receipt Date: 20110928
  Transmission Date: 20120403
  Serious: Yes (Hospitalization)
  Sender: FDA-Public Use
  Company Number: FI-B.I. PHARMACEUTICALS,INC./RIDGEFIELD-2011-SW-00389SF

PATIENT
  Age: 83 Year
  Sex: Male

DRUGS (8)
  1. PRADAXA [Suspect]
     Indication: CEREBROVASCULAR ACCIDENT PROPHYLAXIS
     Dosage: 220 MG
     Dates: start: 20110901
  2. XANTRAL [Concomitant]
     Dosage: 10 MG
  3. PANTOPRAZOLE [Concomitant]
  4. ATROVENT [Concomitant]
  5. PRADAXA [Suspect]
     Indication: ATRIAL FIBRILLATION
  6. ENANTON DEPOT [Concomitant]
  7. SIMVASTATIN [Concomitant]
  8. PRAMIPEXOLE DIHYDROCHLORIDE [Concomitant]
     Dosage: 1 TABLET IN THE EVENING

REACTIONS (1)
  - ERYSIPELAS [None]
